FAERS Safety Report 9015900 (Version 1)
Quarter: 2013Q1

REPORT INFORMATION
  Report Type: Spontaneous
  Country: US (occurrence: US)
  Receive Date: 20130116
  Receipt Date: 20130116
  Transmission Date: 20140127
  Serious: Yes (Other)
  Sender: FDA-Public Use
  Company Number: US-009507513-1012USA00671

PATIENT
  Age: 19 Year
  Sex: Female
  Weight: 75 kg

DRUGS (1)
  1. SINGULAIR [Suspect]
     Indication: ASTHMA
     Dosage: 10 MG, QD
     Route: 048
     Dates: start: 20070601, end: 20100201

REACTIONS (7)
  - Concussion [Unknown]
  - Dyspnoea [Unknown]
  - Fear [Unknown]
  - Muscular weakness [Unknown]
  - Syncope [Unknown]
  - Contusion [Unknown]
  - Arthralgia [Unknown]
